FAERS Safety Report 7417075-8 (Version None)
Quarter: 2011Q2

REPORT INFORMATION
  Report Type: 
  Country: None (occurrence: None)
  Receive Date: 20110415
  Receipt Date: 20110401
  Transmission Date: 20111010
  Serious: Yes (Other)
  Sender: FDA-Public Use
  Company Number: FR-SOLVAY-00211002931

PATIENT
  Age: 55 Year
  Sex: Female
  Weight: 78 kg

DRUGS (6)
  1. TRIATEC [Suspect]
     Indication: PRODUCT USED FOR UNKNOWN INDICATION
     Dosage: DAILY DOSE: 10 MILLIGRAM(S)
     Route: 048
  2. MEDIATOR [Suspect]
     Indication: WEIGHT DECREASED
     Dosage: DAILY DOSE: 3 DOSAGE FORM
     Route: 065
     Dates: start: 20020717, end: 20030514
  3. UTROGESTAN [Suspect]
     Indication: PRODUCT USED FOR UNKNOWN INDICATION
     Dosage: DAILY DOSE:  UNKNOWN
     Route: 065
  4. DAFALGAN CODEINE [Suspect]
     Indication: PRODUCT USED FOR UNKNOWN INDICATION
     Dosage: DAILY DOSE:  UNKNOWN
     Route: 048
  5. FLUDEX [Suspect]
     Indication: PRODUCT USED FOR UNKNOWN INDICATION
     Dosage: DAILY DOSE: 1.5 MILLIGRAM(S)
     Route: 048
  6. DERMESTRIL [Suspect]
     Indication: PRODUCT USED FOR UNKNOWN INDICATION
     Dosage: DAILY DOSE:  UNKNOWN
     Route: 062

REACTIONS (2)
  - MITRAL VALVE DISEASE [None]
  - AORTIC VALVE DISEASE [None]
